FAERS Safety Report 15613725 (Version 2)
Quarter: 2019Q1

REPORT INFORMATION
  Report Type: Report from Study
  Country: US (occurrence: US)
  Receive Date: 20181113
  Receipt Date: 20190131
  Transmission Date: 20190417
  Serious: Yes (Other)
  Sender: FDA-Public Use
  Company Number: US-GILEAD-2018-0374129

PATIENT
  Age: 11 Year
  Sex: Female
  Weight: 47.9 kg

DRUGS (4)
  1. TADALAFIL. [Concomitant]
     Active Substance: TADALAFIL
  2. AMBRISENTAN [Suspect]
     Active Substance: AMBRISENTAN
     Indication: PRODUCT USED FOR UNKNOWN INDICATION
     Dosage: 5 MG, QD
     Route: 065
     Dates: start: 20160229
  3. AMLODIPINE [Concomitant]
     Active Substance: AMLODIPINE BESYLATE
  4. AMBRISENTAN [Suspect]
     Active Substance: AMBRISENTAN
     Dosage: 2.5 MG, QD
     Route: 048

REACTIONS (5)
  - Menorrhagia [Recovered/Resolved]
  - Anaemia [Recovered/Resolved]
  - Off label use [Not Recovered/Not Resolved]
  - Pallor [Unknown]
  - Asthenia [Unknown]

NARRATIVE: CASE EVENT DATE: 20160229
